FAERS Safety Report 10331911 (Version 1)
Quarter: 2014Q3

REPORT INFORMATION
  Report Type: Spontaneous
  Country: US (occurrence: None)
  Receive Date: 20140721
  Receipt Date: 20140721
  Transmission Date: 20150326
  Serious: No
  Sender: FDA-Public Use
  Company Number: None

PATIENT
  Sex: Female

DRUGS (3)
  1. OLYSIO [Suspect]
     Active Substance: SIMEPREVIR
     Indication: HEPATITIS C
     Dosage: 1 DAILY ORAL
     Route: 048
     Dates: start: 20140508
  2. SOVALDI [Suspect]
     Active Substance: SOFOSBUVIR
     Indication: HEPATITIS C
     Dosage: 1 DAILY ORAL
     Route: 048
     Dates: start: 20140508
  3. FORTEO [Concomitant]
     Active Substance: TERIPARATIDE

REACTIONS (4)
  - Hypotension [None]
  - Contusion [None]
  - Syncope [None]
  - Laceration [None]
